FAERS Safety Report 5023027-8 (Version None)
Quarter: 2006Q2

REPORT INFORMATION
  Report Type: 
  Country: None (occurrence: None)
  Receive Date: 20060426
  Receipt Date: 20060324
  Transmission Date: 20061013
  Serious: Yes (Other)
  Sender: FDA-Public Use
  Company Number: 2006043754

PATIENT
  Sex: 0

DRUGS (1)
  1. LYRICA [Suspect]
     Indication: POST HERPETIC NEURALGIA
     Dosage: 150 MG (75 MG, 2 IN 1 D),
     Dates: start: 20060101, end: 20060101

REACTIONS (2)
  - OLIGURIA [None]
  - URINARY RETENTION [None]
